FAERS Safety Report 18319177 (Version 1)
Quarter: 2020Q3

REPORT INFORMATION
  Report Type: Spontaneous
  Country: US (occurrence: US)
  Receive Date: 20200928
  Receipt Date: 20200928
  Transmission Date: 20201103
  Serious: Yes (Life-Threatening)
  Sender: FDA-Public Use
  Company Number: None

PATIENT
  Age: 50 Year
  Sex: Male

DRUGS (1)
  1. APIXABAN [Suspect]
     Active Substance: APIXABAN

REACTIONS (6)
  - Incision site haemorrhage [None]
  - Malaise [None]
  - Septic shock [None]
  - Retroperitoneal haematoma [None]
  - Klebsiella infection [None]
  - Atrial fibrillation [None]

NARRATIVE: CASE EVENT DATE: 20191226
